FAERS Safety Report 5804010-9 (Version None)
Quarter: 2008Q3

REPORT INFORMATION
  Report Type: 
  Country: None (occurrence: None)
  Receive Date: 20080703
  Receipt Date: 20080619
  Transmission Date: 20090109
  Serious: Yes (Death, Hospitalization)
  Sender: FDA-Public Use
  Company Number: AZAUS200800182

PATIENT
  Age: 81 Year
  Sex: Male
  Weight: 76 kg

DRUGS (17)
  1. VIDAZA [Suspect]
     Indication: MYELODYSPLASTIC SYNDROME
     Dosage: (75 MG/M2,DAILY X 5 DAYS), SUBCUTANEOUS
     Route: 058
     Dates: start: 20080324, end: 20080328
  2. COMPAZINE [Concomitant]
  3. LISINOPRIL [Concomitant]
  4. NIFEDIPINE [Concomitant]
  5. METOPROLOL SUCCINATE [Concomitant]
  6. FUROSEMIDE [Concomitant]
  7. SYNTHROID [Concomitant]
  8. ASPIRIN [Concomitant]
  9. CORGARD [Concomitant]
  10. VITAMIN E [Concomitant]
  11. BETA CAROTENE (BETACAROTENE) [Concomitant]
  12. MEVACOR [Concomitant]
  13. SIMVASTATIN [Concomitant]
  14. STRESS TABS (STRESSTABS /00512101/) [Concomitant]
  15. CENTRUM (MULTIVITAMINS) [Concomitant]
  16. FISH OIL (FISH OIL) [Concomitant]
  17. POTASSIUM CHLORIDE [Concomitant]

REACTIONS (5)
  - CARDIO-RESPIRATORY ARREST [None]
  - CONDITION AGGRAVATED [None]
  - HYPOXIA [None]
  - LOBAR PNEUMONIA [None]
  - NEUTROPENIA [None]
